FAERS Safety Report 18191492 (Version 1)
Quarter: 2020Q3

REPORT INFORMATION
  Report Type: Spontaneous
  Country: US (occurrence: US)
  Receive Date: 20200824
  Receipt Date: 20200824
  Transmission Date: 20201103
  Serious: Yes (Other)
  Sender: FDA-Public Use
  Company Number: None

PATIENT
  Age: 73 Year
  Sex: Male

DRUGS (7)
  1. CABOMETYX [Suspect]
     Active Substance: CABOZANTINIB S-MALATE
     Indication: RENAL CELL CARCINOMA
     Route: 048
     Dates: start: 20200617, end: 20200820
  2. BASAGLAR 100U/ML KWIKPEN [Concomitant]
     Dates: start: 20200616
  3. NOVOLOG U?100 [Concomitant]
     Dates: start: 20200616
  4. AMLODIPINE [Concomitant]
     Active Substance: AMLODIPINE BESYLATE
     Dates: start: 20200217
  5. OLMESARTAN/HCTZ 40?25MG [Concomitant]
     Dates: start: 20200217
  6. ATORVASTATIN 20MG [Concomitant]
     Active Substance: ATORVASTATIN
     Dates: start: 20200217
  7. KEPPRA [Concomitant]
     Active Substance: LEVETIRACETAM
     Dates: start: 20200217

REACTIONS (5)
  - Decreased appetite [None]
  - Hyperkeratosis [None]
  - Dry skin [None]
  - Diarrhoea [None]
  - Erythema [None]

NARRATIVE: CASE EVENT DATE: 20200801
